FAERS Safety Report 4579796-4 (Version None)
Quarter: 2005Q1

REPORT INFORMATION
  Report Type: 
  Country: None (occurrence: None)
  Receive Date: 20050210
  Receipt Date: 20050125
  Transmission Date: 20050727
  Serious: Yes (Hospitalization)
  Sender: FDA-Public Use
  Company Number: DSA_25728_2005

PATIENT
  Age: 72 Year
  Sex: Female

DRUGS (4)
  1. TEMESTA [Suspect]
     Indication: ANXIETY
     Dosage: 1 TAB Q DAY PO
     Route: 048
     Dates: start: 20041120
  2. NAVELBINE [Suspect]
     Indication: SMALL CELL LUNG CANCER STAGE UNSPECIFIED
     Dosage: 54 MG ONCE IV
     Route: 042
     Dates: start: 20041104, end: 20041110
  3. SMECTA [Suspect]
     Dosage: 5 DF Q DAY PO
     Route: 048
     Dates: start: 20041113, end: 20041123
  4. TRIFLUCAN [Suspect]
     Indication: ORAL CANDIDIASIS
     Dosage: 1 DF Q DAY PO
     Route: 048
     Dates: start: 20041113, end: 20041123

REACTIONS (2)
  - DERMATITIS BULLOUS [None]
  - ERYTHEMA [None]
